FAERS Safety Report 5124132-8 (Version None)
Quarter: 2006Q4

REPORT INFORMATION
  Report Type: 
  Country: None (occurrence: None)
  Receive Date: 20061010
  Receipt Date: 20060324
  Transmission Date: 20070319
  Serious: Yes (Other)
  Sender: FDA-Public Use
  Company Number: US-BRISTOL-MYERS SQUIBB COMPANY-13325774

PATIENT
  Age: 62 Year
  Sex: Female
  Weight: 77 kg

DRUGS (4)
  1. AVAPRO [Suspect]
     Dates: end: 20060201
  2. SYNTHROID [Concomitant]
  3. NEXIUM [Concomitant]
  4. ALBUTEROL [Concomitant]

REACTIONS (1)
  - ANGIONEUROTIC OEDEMA [None]
